FAERS Safety Report 18219226 (Version 1)
Quarter: 2020Q3

REPORT INFORMATION
  Report Type: Spontaneous
  Country: SG (occurrence: SG)
  Receive Date: 20200901
  Receipt Date: 20200901
  Transmission Date: 20201103
  Serious: Yes (Life-Threatening)
  Sender: FDA-Public Use
  Company Number: SG-ABBVIE-20K-141-3547900-00

PATIENT
  Age: 67 Year
  Sex: Male

DRUGS (3)
  1. PROPOFOL. [Concomitant]
     Active Substance: PROPOFOL
     Indication: SEDATION
     Dosage: 2/2.5 MG/KG/H)
     Route: 042
  2. LOPINAVIR/RITONAVIR [Suspect]
     Active Substance: LOPINAVIR\RITONAVIR
     Indication: COVID-19
     Dosage: 4 MG/KG LOPINAVIR/ 1 MG/KG
     Route: 048
  3. FENTANYL. [Concomitant]
     Active Substance: FENTANYL
     Indication: SEDATION
     Dosage: 1?1.5 MCG/KG/H
     Route: 042

REACTIONS (2)
  - Bradycardia [Recovered/Resolved]
  - Off label use [Unknown]
